FAERS Safety Report 5514078-5 (Version None)
Quarter: 2007Q4

REPORT INFORMATION
  Report Type: 
  Country: None (occurrence: None)
  Receive Date: 20071113
  Receipt Date: 20071106
  Transmission Date: 20080405
  Serious: Yes (Other)
  Sender: FDA-Public Use
  Company Number: BR-AVENTIS-200720106GDDC

PATIENT
  Age: 24 Year
  Sex: Female
  Weight: 61 kg

DRUGS (5)
  1. ARAVA [Suspect]
     Dosage: DOSE: 1 TABLET
     Dates: end: 20070601
  2. PREDNISOLONE [Suspect]
     Indication: PAIN
     Dosage: DOSE: 1 TABLET
     Route: 048
  3. OMEPRAZOLE [Suspect]
     Dosage: DOSE: UNK
  4. NAPROXEN [Concomitant]
     Indication: PAIN
     Dosage: DOSE: 1 TABLET
     Route: 048
  5. RANITIDINE [Concomitant]
     Dosage: DOSE: 2 TABLETS
     Route: 048

REACTIONS (2)
  - ABORTION SPONTANEOUS [None]
  - DRUG EXPOSURE DURING PREGNANCY [None]
